FAERS Safety Report 19822985 (Version 6)
Quarter: 2022Q2

REPORT INFORMATION
  Report Type: Other
  Country: CA (occurrence: CA)
  Receive Date: 20210913
  Receipt Date: 20220518
  Transmission Date: 20220720
  Serious: Yes (Hospitalization, Other)
  Sender: FDA-Public Use
  Company Number: CA-002147023-NVSC2021CA062940

PATIENT
  Age: 21 Year
  Sex: Female
  Weight: 54 kg

DRUGS (5)
  1. XOLAIR [Suspect]
     Active Substance: OMALIZUMAB
     Indication: Chronic spontaneous urticaria
     Route: 058
     Dates: start: 20201116
  2. XOLAIR [Suspect]
     Active Substance: OMALIZUMAB
     Indication: Asthma
  3. BILASTINE [Concomitant]
     Active Substance: BILASTINE
     Indication: Product used for unknown indication
     Route: 065
  4. PREDNISONE [Concomitant]
     Active Substance: PREDNISONE
     Indication: Product used for unknown indication
     Route: 065
  5. CETIRIZINE HYDROCHLORIDE [Concomitant]
     Active Substance: CETIRIZINE HYDROCHLORIDE
     Indication: Product used for unknown indication
     Route: 065

REACTIONS (20)
  - Anaphylactic shock [Recovering/Resolving]
  - Altered state of consciousness [Unknown]
  - Diarrhoea [Unknown]
  - Gastrointestinal pain [Recovering/Resolving]
  - Papule [Unknown]
  - Flank pain [Unknown]
  - Hepatic enzyme abnormal [Unknown]
  - Headache [Unknown]
  - Urinary tract infection [Unknown]
  - Somnolence [Unknown]
  - Fatigue [Unknown]
  - Hypotension [Recovering/Resolving]
  - Injury [Unknown]
  - Gastrointestinal disorder [Recovering/Resolving]
  - Rash pruritic [Unknown]
  - Fungal infection [Unknown]
  - Pruritus [Recovered/Resolved]
  - Erythema [Recovered/Resolved]
  - Weight decreased [Unknown]
  - Alopecia [Unknown]

NARRATIVE: CASE EVENT DATE: 20210101
